FAERS Safety Report 5612506-8 (Version None)
Quarter: 2008Q1

REPORT INFORMATION
  Report Type: 
  Country: None (occurrence: None)
  Receive Date: 20080201
  Receipt Date: 20080201
  Transmission Date: 20080703
  Serious: Yes (Other)
  Sender: FDA-Public Use
  Company Number: None

PATIENT
  Age: 38 Year
  Sex: Female
  Weight: 63.5036 kg

DRUGS (2)
  1. ZYRTEC [Suspect]
     Indication: HYPERSENSITIVITY
     Dosage: 2.5 DAILY PO
     Route: 048
     Dates: start: 20031215, end: 20080128
  2. ZYRTEC [Suspect]
     Indication: WITHDRAWAL SYNDROME
     Dosage: 2.5 DAILY PO
     Route: 048
     Dates: start: 20031215, end: 20080128

REACTIONS (5)
  - DRUG DEPENDENCE [None]
  - PRURITUS [None]
  - SKIN BURNING SENSATION [None]
  - URTICARIA [None]
  - WITHDRAWAL SYNDROME [None]
